FAERS Safety Report 5423896-3 (Version None)
Quarter: 2007Q3

REPORT INFORMATION
  Report Type: 
  Country: None (occurrence: None)
  Receive Date: 20070823
  Receipt Date: 20070814
  Transmission Date: 20080115
  Serious: Yes (Hospitalization)
  Sender: FDA-Public Use
  Company Number: US-GENENTECH-244408

PATIENT
  Sex: Female
  Weight: 48.526 kg

DRUGS (7)
  1. BEVACIZUMAB [Suspect]
     Indication: NON-SMALL CELL LUNG CANCER
     Dosage: 804 UNK, Q3W
     Route: 042
     Dates: start: 20070402
  2. BEVACIZUMAB [Suspect]
     Indication: METASTASES TO CENTRAL NERVOUS SYSTEM
  3. ALIMTA [Suspect]
     Indication: NON-SMALL CELL LUNG CANCER
     Dosage: 745 UNK, Q3W
     Route: 042
     Dates: start: 20070402
  4. ALIMTA [Suspect]
     Indication: METASTASES TO CENTRAL NERVOUS SYSTEM
  5. ATIVAN [Concomitant]
     Indication: NAUSEA
     Dosage: 1 MG, PRN
     Route: 048
  6. KEPPRA [Concomitant]
     Indication: DRUG USE FOR UNKNOWN INDICATION
     Dosage: 500 MG, UNK
     Route: 048
  7. OXYCODONE HCL [Concomitant]
     Indication: PAIN
     Dosage: 5 MG, PRN
     Route: 048

REACTIONS (5)
  - ANAEMIA [None]
  - FACE INJURY [None]
  - FALL [None]
  - HEAD INJURY [None]
  - PLATELET COUNT DECREASED [None]
